FAERS Safety Report 7105277-X (Version None)
Quarter: 2010Q4

REPORT INFORMATION
  Report Type: 
  Country: None (occurrence: None)
  Receive Date: 20101116
  Receipt Date: 20101108
  Transmission Date: 20110411
  Serious: No
  Sender: FDA-Public Use
  Company Number: US-ROXANE LABORATORIES, INC.-2010-RO-01397RO

PATIENT
  Sex: Male
  Weight: 81 kg

DRUGS (3)
  1. DEXAMETHASONE [Suspect]
     Indication: GINGIVAL OEDEMA
     Dosage: 2.25 MG
     Route: 048
     Dates: start: 20100823, end: 20100825
  2. AMOXICILLIN [Concomitant]
     Indication: INFECTION PROPHYLAXIS
  3. LORTAB [Concomitant]
     Indication: PAIN

REACTIONS (2)
  - HICCUPS [None]
  - NAUSEA [None]
